FAERS Safety Report 5878171-X (Version None)
Quarter: 2008Q3

REPORT INFORMATION
  Report Type: 
  Country: None (occurrence: None)
  Receive Date: 20080911
  Receipt Date: 20080904
  Transmission Date: 20090109
  Serious: Yes (Hospitalization)
  Sender: FDA-Public Use
  Company Number: HQWYE876802JUL07

PATIENT
  Sex: Male

DRUGS (6)
  1. HYPEN [Suspect]
     Indication: OSTEOARTHRITIS
     Route: 048
     Dates: start: 20070615, end: 20070601
  2. REBAMIPIDE [Concomitant]
     Dosage: NOT SPECIFIED
     Route: 048
     Dates: start: 20070615, end: 20070601
  3. TICLOPIDINE HYDROCHLORIDE [Concomitant]
  4. SIMVASTATIN [Concomitant]
  5. IMIDAPRIL HYDROCHLORIDE [Concomitant]
  6. ASPIRIN [Concomitant]

REACTIONS (2)
  - COLITIS ISCHAEMIC [None]
  - GASTRITIS [None]
